FAERS Safety Report 15725578 (Version 3)
Quarter: 2020Q3

REPORT INFORMATION
  Report Type: Spontaneous
  Country: DE (occurrence: DE)
  Receive Date: 20181215
  Receipt Date: 20190227
  Transmission Date: 20201104
  Serious: Yes (Other)
  Sender: FDA-Public Use
  Company Number: DE-ACCORD-096253

PATIENT
  Age: 63 Year
  Sex: Male
  Weight: 100 kg

DRUGS (9)
  1. IBANDRONIC ACID. [Suspect]
     Active Substance: IBANDRONIC ACID
     Indication: PRODUCT USED FOR UNKNOWN INDICATION
  2. LEVOFLOXACIN. [Interacting]
     Active Substance: LEVOFLOXACIN
     Indication: PRODUCT USED FOR UNKNOWN INDICATION
  3. RAMILICH [Concomitant]
     Active Substance: RAMIPRIL
  4. PANTOPRAZOL?RATIOPHARM [Concomitant]
  5. IRBESARTAN. [Concomitant]
     Active Substance: IRBESARTAN
  6. SALBUTAMOL [Interacting]
     Active Substance: ALBUTEROL
     Indication: PRODUCT USED FOR UNKNOWN INDICATION
  7. ALLOPURINOL. [Concomitant]
     Active Substance: ALLOPURINOL
  8. CLONIDIN?RATIOPHARM [Concomitant]
     Dosage: 1X1
  9. BISOPROLOL 1 A PHARMA [Concomitant]
     Dosage: 1X1

REACTIONS (8)
  - Dyspnoea [Recovered/Resolved]
  - Nausea [Recovered/Resolved]
  - Drug interaction [Unknown]
  - Respiratory distress [Recovered/Resolved]
  - Loss of consciousness [Recovered/Resolved]
  - Appetite disorder [Recovered/Resolved]
  - Agitation [Recovered/Resolved]
  - Fall [Recovered/Resolved]

NARRATIVE: CASE EVENT DATE: 20170916
